FAERS Safety Report 7433622-4 (Version None)
Quarter: 2011Q2

REPORT INFORMATION
  Report Type: 
  Country: None (occurrence: None)
  Receive Date: 20110422
  Receipt Date: 20110413
  Transmission Date: 20111010
  Serious: Yes (Death, Other)
  Sender: FDA-Public Use
  Company Number: NL-ABBOTT-10P-114-0693197-00

PATIENT
  Age: 62 Year
  Sex: Male

DRUGS (1)
  1. HUMIRA [Suspect]
     Indication: PRODUCT USED FOR UNKNOWN INDICATION
     Dosage: 12 MONTH DURATION
     Route: 058

REACTIONS (2)
  - DEEP VEIN THROMBOSIS [None]
  - METASTATIC NEOPLASM [None]
